FAERS Safety Report 20820899 (Version 1)
Quarter: 2022Q2

REPORT INFORMATION
  Report Type: Report from Study
  Country: US (occurrence: US)
  Receive Date: 20220512
  Receipt Date: 20220512
  Transmission Date: 20220720
  Serious: No
  Sender: FDA-Public Use
  Company Number: US-NOVARTISTESTPH-NVSC2022US109178

PATIENT
  Sex: Female

DRUGS (1)
  1. COSENTYX [Suspect]
     Active Substance: SECUKINUMAB
     Indication: Psoriatic arthropathy
     Dosage: UNK, QMO
     Route: 058

REACTIONS (7)
  - Psoriasis [Unknown]
  - Pigmentation disorder [Unknown]
  - Skin exfoliation [Unknown]
  - COVID-19 [Unknown]
  - Oropharyngeal pain [Unknown]
  - Fatigue [Unknown]
  - Drug ineffective [Unknown]
